FAERS Safety Report 4737129-4 (Version None)
Quarter: 2005Q3

REPORT INFORMATION
  Report Type: 
  Country: None (occurrence: None)
  Receive Date: 20050804
  Receipt Date: 20050729
  Transmission Date: 20060218
  Serious: Yes (Hospitalization)
  Sender: FDA-Public Use
  Company Number: 2005-08-0007

PATIENT
  Age: 65 Year
  Sex: Female
  Weight: 76 kg

DRUGS (6)
  1. TEMODAL [Suspect]
     Indication: GLIOSARCOMA
     Dosage: 140 MG QD ORAL
     Route: 048
     Dates: start: 20050630, end: 20050706
  2. BELOC-ZOK TABLETS [Concomitant]
  3. NORVASC [Concomitant]
  4. CO-DIOVAN (VALSARTAN/HYDROCHLOROTHIAZIDE) TABLETS [Concomitant]
  5. TIMONIL SLOW RELEASE TABLETS [Concomitant]
  6. CIPRALEX (ESCITALOPRAM OXALATE) COATED TABLTES [Concomitant]

REACTIONS (3)
  - BRONCHITIS [None]
  - DRUG ERUPTION [None]
  - HYPERURICAEMIA [None]
